FAERS Safety Report 23176450 (Version 1)
Quarter: 2023Q4

REPORT INFORMATION
  Report Type: Report from Study
  Country: CA (occurrence: CA)
  Receive Date: 20231113
  Receipt Date: 20231113
  Transmission Date: 20240109
  Serious: Yes (Hospitalization, Other)
  Sender: FDA-Public Use
  Company Number: CA-TAKEDA-2023TUS109623

PATIENT
  Sex: Male

DRUGS (2)
  1. HUMAN IMMUNOGLOBULIN G [Suspect]
     Active Substance: HUMAN IMMUNOGLOBULIN G
     Indication: Primary immunodeficiency syndrome
     Dosage: 8 GRAM, 1/WEEK
     Route: 050
     Dates: start: 20181012
  2. LANSOPRAZOLE [Concomitant]
     Active Substance: LANSOPRAZOLE
     Dosage: UNK
     Route: 065

REACTIONS (1)
  - Pneumonia [Unknown]
